FAERS Safety Report 7844406-7 (Version None)
Quarter: 2011Q4

REPORT INFORMATION
  Report Type: 
  Country: None (occurrence: None)
  Receive Date: 20111025
  Receipt Date: 20111021
  Transmission Date: 20120403
  Serious: Yes (Hospitalization, Other)
  Sender: FDA-Public Use
  Company Number: US-MERCK-1107USA02329

PATIENT
  Age: 66 Year
  Sex: Female

DRUGS (4)
  1. TEKTURNA [Concomitant]
     Indication: HYPERTENSION
     Route: 065
     Dates: start: 20050101
  2. FOSAMAX PLUS D [Suspect]
     Indication: OSTEOPOROSIS
     Route: 048
     Dates: start: 20050401, end: 20090701
  3. FOSAMAX [Suspect]
     Indication: OSTEOPOROSIS
     Route: 048
     Dates: start: 20050101, end: 20090701
  4. CRESTOR [Concomitant]
     Indication: BLOOD CHOLESTEROL
     Route: 065
     Dates: start: 20050101

REACTIONS (15)
  - INCORRECT DOSE ADMINISTERED [None]
  - OSTEOPOROSIS [None]
  - DIABETES MELLITUS [None]
  - FALL [None]
  - URINARY RETENTION [None]
  - ABDOMINAL DISCOMFORT [None]
  - BLOOD CALCIUM DECREASED [None]
  - DYSLIPIDAEMIA [None]
  - FEMUR FRACTURE [None]
  - CORONARY ARTERY DISEASE [None]
  - OXYGEN SATURATION DECREASED [None]
  - ANXIETY [None]
  - VITAMIN D DEFICIENCY [None]
  - HYPERTENSION [None]
  - RENAL CANCER [None]
